FAERS Safety Report 5729830-0 (Version None)
Quarter: 2008Q2

REPORT INFORMATION
  Report Type: 
  Country: None (occurrence: None)
  Receive Date: 20080501
  Receipt Date: 20080421
  Transmission Date: 20081010
  Serious: Yes (Death, Life-Threatening)
  Sender: FDA-Public Use
  Company Number: 000658

PATIENT
  Age: 52 Year
  Sex: Female

DRUGS (8)
  1. BUSULFEX (BUSULFAN) INJECTION [Suspect]
     Indication: STEM CELL TRANSPLANT
     Dosage: 26.8 ML, INTRAVENOUS
     Route: 042
     Dates: start: 20070604, end: 20070605
  2. FLUDARABINE PHOSPHATE [Concomitant]
  3. CYTARABINE [Concomitant]
  4. MITOXANTRONE [Concomitant]
  5. PHENYTOIN [Concomitant]
  6. NEUPOGEN [Concomitant]
  7. METHOTREXATE [Concomitant]
  8. TACROLIMUS [Concomitant]

REACTIONS (12)
  - ADENOVIRAL HAEMORRHAGIC CYSTITIS [None]
  - ANOREXIA [None]
  - BLOOD POTASSIUM DECREASED [None]
  - ENGRAFT FAILURE [None]
  - MALAISE [None]
  - NAUSEA [None]
  - PHARYNGEAL OEDEMA [None]
  - PNEUMONIA BACTERIAL [None]
  - PULMONARY HAEMORRHAGE [None]
  - STENOTROPHOMONAS INFECTION [None]
  - STENOTROPHOMONAS SEPSIS [None]
  - STOMATITIS [None]
